FAERS Safety Report 7020843-8 (Version None)
Quarter: 2010Q3

REPORT INFORMATION
  Report Type: 
  Country: None (occurrence: None)
  Receive Date: 20100929
  Receipt Date: 20100924
  Transmission Date: 20110219
  Serious: Yes (Life-Threatening)
  Sender: FDA-Public Use
  Company Number: HK-BAYER-201040493GPV

PATIENT
  Age: 46 Year
  Sex: Male
  Weight: 55 kg

DRUGS (12)
  1. SORAFENIB [Suspect]
     Indication: HEPATIC NEOPLASM MALIGNANT
     Route: 048
     Dates: start: 20100707, end: 20100907
  2. SORAFENIB [Suspect]
     Route: 048
     Dates: start: 20100908
  3. ERLOTINIB OR PLACEBO [Suspect]
     Indication: HEPATIC NEOPLASM MALIGNANT
     Route: 048
     Dates: start: 20100908
  4. ERLOTINIB OR PLACEBO [Suspect]
     Route: 048
     Dates: start: 20100707, end: 20100907
  5. DF 118 [Concomitant]
     Indication: PAIN
     Route: 048
     Dates: start: 20100728, end: 20100817
  6. LAMIVUDINE [Concomitant]
     Indication: HEPATITIS B
     Route: 048
     Dates: start: 20100312, end: 20100914
  7. ADEFOVIR DIPIVOXIL KIT [Concomitant]
     Indication: HEPATITIS B
     Route: 048
     Dates: start: 20100312, end: 20100914
  8. SYNALAR [Concomitant]
     Indication: RASH
     Route: 061
     Dates: start: 20100811, end: 20100831
  9. VIOFORM [Concomitant]
     Indication: RASH
     Route: 061
     Dates: start: 20100811, end: 20100831
  10. SENNA [Concomitant]
     Indication: CONSTIPATION
     Route: 048
     Dates: start: 20100811, end: 20100824
  11. CALAMINE [Concomitant]
     Indication: RASH
     Route: 061
     Dates: start: 20100808, end: 20100831
  12. BARACLUDE [Concomitant]
     Indication: HEPATITIS B
     Route: 048
     Dates: start: 20100915

REACTIONS (1)
  - HEPATIC FUNCTION ABNORMAL [None]
